FAERS Safety Report 8529636-3 (Version None)
Quarter: 2012Q3

REPORT INFORMATION
  Report Type: 
  Country: None (occurrence: None)
  Receive Date: 20120723
  Receipt Date: 20120710
  Transmission Date: 20120928
  Serious: Yes (Other)
  Sender: FDA-Public Use
  Company Number: JP-VERTEX PHARMACEUTICALS INC.-AE-2012-010396

PATIENT
  Age: 64 Year
  Sex: Male

DRUGS (5)
  1. REBETOL [Concomitant]
     Route: 048
     Dates: start: 20120529
  2. TELAVIC (TELAPREVIR) [Suspect]
     Indication: HEPATITIS C
     Route: 048
     Dates: start: 20120403, end: 20120702
  3. REBETOL [Concomitant]
     Indication: HEPATITIS C
     Route: 048
     Dates: start: 20120403
  4. PEG-INTRON [Concomitant]
     Indication: HEPATITIS C
     Route: 058
     Dates: start: 20120403
  5. REBETOL [Concomitant]
     Route: 048
     Dates: start: 20120424, end: 20120528

REACTIONS (1)
  - SYNCOPE [None]
